FAERS Safety Report 8883903 (Version 1)
Quarter: 2012Q4

REPORT INFORMATION
  Report Type: 
  Country: US (occurrence: US)
  Receive Date: 20121102
  Receipt Date: 20121102
  Transmission Date: 20130627
  Serious: No
  Sender: FDA-Public Use
  Company Number: US-ASTRAZENECA-2012SE10438

PATIENT
  Age: 43 Year
  Sex: Male
  Weight: 112 kg

DRUGS (2)
  1. CRESTOR [Suspect]
     Indication: BLOOD CHOLESTEROL INCREASED
     Route: 048
  2. LISINOPRIL [Concomitant]

REACTIONS (4)
  - Groin pain [Unknown]
  - Pelvic fluid collection [Unknown]
  - Myalgia [Unknown]
  - Proteinuria [Unknown]
